FAERS Safety Report 20139559 (Version 1)
Quarter: 2021Q4

REPORT INFORMATION
  Report Type: Spontaneous
  Country: HR (occurrence: HR)
  Receive Date: 20211202
  Receipt Date: 20211202
  Transmission Date: 20220303
  Serious: Yes (Hospitalization)
  Sender: FDA-Public Use
  Company Number: HR-PFIZER INC-202101138074

PATIENT
  Age: 53 Year
  Sex: Female

DRUGS (3)
  1. LORLATINIB [Suspect]
     Active Substance: LORLATINIB
     Dosage: 100 MG, 1X/DAY
     Dates: start: 202103
  2. LORLATINIB [Suspect]
     Active Substance: LORLATINIB
     Dosage: 75 UNK
  3. ROSUVASTATIN [Concomitant]
     Active Substance: ROSUVASTATIN
     Dosage: UNK

REACTIONS (9)
  - Dysphagia [Unknown]
  - Vomiting [Unknown]
  - Dyspnoea [Unknown]
  - Chest discomfort [Unknown]
  - Paraesthesia [Recovering/Resolving]
  - Coordination abnormal [Recovering/Resolving]
  - Panic attack [Recovering/Resolving]
  - Peripheral swelling [Recovering/Resolving]
  - Blood cholesterol abnormal [Recovering/Resolving]

NARRATIVE: CASE EVENT DATE: 20210101
